FAERS Safety Report 10007262 (Version 1)
Quarter: 2014Q1

REPORT INFORMATION
  Report Type: Spontaneous
  Country: US (occurrence: None)
  Receive Date: 20140311
  Receipt Date: 20140311
  Transmission Date: 20141002
  Serious: Yes (Hospitalization, Other)
  Sender: FDA-Public Use
  Company Number: OPCR20140079

PATIENT
  Age: 26 Year
  Sex: Female

DRUGS (1)
  1. OPANA ER [Suspect]
     Indication: DRUG ABUSE
     Dosage: UNK, DAILY FOR OVER A 1 YEAR PERIOD
     Route: 042

REACTIONS (4)
  - Microangiopathic haemolytic anaemia [None]
  - Thrombotic microangiopathy [None]
  - Renal failure acute [None]
  - Substance abuse [None]
